FAERS Safety Report 8089692-6 (Version None)
Quarter: 2012Q1

REPORT INFORMATION
  Report Type: 
  Country: None (occurrence: None)
  Receive Date: 20120128
  Receipt Date: 20110701
  Transmission Date: 20120608
  Serious: No
  Sender: FDA-Public Use
  Company Number: US-ABBOTT-11P-163-0835884-00

PATIENT
  Age: 54 Year
  Sex: Female

DRUGS (17)
  1. ESTRADIOL [Concomitant]
     Indication: HORMONE REPLACEMENT THERAPY
     Dosage: 1 MG - DAILY
  2. OMEPRAZOLE [Concomitant]
     Indication: PRODUCT USED FOR UNKNOWN INDICATION
     Dosage: 20 MG - BID
  3. HUMIRA [Suspect]
     Indication: SYSTEMIC LUPUS ERYTHEMATOSUS
  4. CONCERTA [Concomitant]
     Indication: ATTENTION DEFICIT/HYPERACTIVITY DISORDER
     Dosage: 54 MG - TWO TABLETS DAILY
  5. METHOTREXATE [Concomitant]
     Indication: PRODUCT USED FOR UNKNOWN INDICATION
     Dosage: 2.5 MG - 10 TABLETS WEEKLY
  6. WELLBUTRIN [Concomitant]
     Indication: DEPRESSION
     Dosage: 300MG IN AM + 150 MG IN PM
  7. MIRTAZAPINE [Concomitant]
     Indication: DEPRESSION
     Dosage: 30 MG - BID
  8. LASIX [Concomitant]
     Indication: PRODUCT USED FOR UNKNOWN INDICATION
     Dosage: 20 MG - EVERY OTHER DAY
  9. HUMIRA [Suspect]
     Indication: ARTHRITIS
     Dates: start: 20100101
  10. VITAMIN D [Concomitant]
     Indication: PRODUCT USED FOR UNKNOWN INDICATION
     Dosage: 2000 UNITS - DAILY
  11. FOLIC ACID [Concomitant]
     Indication: PRODUCT USED FOR UNKNOWN INDICATION
     Dosage: 1600 MG - DAILY
  12. RITALIN [Concomitant]
     Indication: ATTENTION DEFICIT/HYPERACTIVITY DISORDER
     Dosage: 20 MG - TID
  13. PREDNISONE TAB [Concomitant]
     Indication: PRODUCT USED FOR UNKNOWN INDICATION
     Dosage: 10 MG - DAILY
  14. TRAMADOL HCL [Concomitant]
     Indication: PAIN
     Dosage: 50 MG - TID
  15. CRESTOR [Concomitant]
     Indication: BLOOD CHOLESTEROL INCREASED
     Dosage: 20 MG - DAILY
  16. LYRICA [Concomitant]
     Indication: FIBROMYALGIA
     Dosage: 150 MG - TID
  17. FLORINEF [Concomitant]
     Indication: ADDISON'S DISEASE
     Dosage: 0.1 MG - DAILY

REACTIONS (3)
  - INCORRECT DOSE ADMINISTERED [None]
  - WRONG TECHNIQUE IN DRUG USAGE PROCESS [None]
  - INJECTION SITE PAIN [None]
